FAERS Safety Report 8497356-X (Version None)
Quarter: 2012Q3

REPORT INFORMATION
  Report Type: 
  Country: None (occurrence: None)
  Receive Date: 20120709
  Receipt Date: 20120611
  Transmission Date: 20120928
  Serious: No
  Sender: FDA-Public Use
  Company Number: US-AMGEN-USASP2012036556

PATIENT
  Age: 56 Year
  Sex: Female

DRUGS (2)
  1. ENBREL [Suspect]
     Indication: PSORIATIC ARTHROPATHY
  2. ENBREL [Suspect]
     Indication: PSORIASIS
     Dosage: 50 MG, QWK
     Dates: start: 20120520, end: 20120602

REACTIONS (7)
  - NAUSEA [None]
  - ASTHENIA [None]
  - PALLOR [None]
  - VOMITING [None]
  - DIZZINESS [None]
  - MUSCLE TWITCHING [None]
  - PSORIASIS [None]
